FAERS Safety Report 16022104 (Version 1)
Quarter: 2019Q1

REPORT INFORMATION
  Report Type: Spontaneous
  Country: US (occurrence: US)
  Receive Date: 20190301
  Receipt Date: 20190301
  Transmission Date: 20190418
  Serious: Yes (Other)
  Sender: FDA-Public Use
  Company Number: US-HIKMA PHARMACEUTICALS USA INC.-US-H14001-19-01235

PATIENT
  Age: 7 Month
  Sex: Female

DRUGS (15)
  1. L-ASPARAGINASE [Suspect]
     Active Substance: ASPARAGINASE
     Route: 030
  2. METHOTREXATE. [Suspect]
     Active Substance: METHOTREXATE
     Indication: ACUTE LEUKAEMIA
     Route: 037
  3. VINCRISTINE [Suspect]
     Active Substance: VINCRISTINE
     Route: 042
  4. CYTARABINE. [Suspect]
     Active Substance: CYTARABINE
     Route: 037
  5. VINCRISTINE [Suspect]
     Active Substance: VINCRISTINE
     Route: 042
  6. CYTARABINE. [Suspect]
     Active Substance: CYTARABINE
     Indication: ACUTE LEUKAEMIA
     Route: 042
  7. L-ASPARAGINASE [Suspect]
     Active Substance: ASPARAGINASE
     Indication: ACUTE LEUKAEMIA
     Dosage: 10000 U/SQUARE METER
     Route: 042
  8. DEXAMETHASONE. [Suspect]
     Active Substance: DEXAMETHASONE
     Indication: ACUTE LEUKAEMIA
     Route: 065
  9. DEXAMETHASONE. [Suspect]
     Active Substance: DEXAMETHASONE
     Route: 065
  10. VINCRISTINE [Suspect]
     Active Substance: VINCRISTINE
     Indication: ACUTE LEUKAEMIA
     Route: 042
  11. DAUNORUBICIN [Suspect]
     Active Substance: DAUNORUBICIN
     Indication: ACUTE LEUKAEMIA
     Route: 042
  12. DAUNORUBICIN [Suspect]
     Active Substance: DAUNORUBICIN
     Route: 042
  13. PREDNISONE. [Suspect]
     Active Substance: PREDNISONE
     Indication: ACUTE LEUKAEMIA
     Route: 065
  14. VINCRISTINE [Suspect]
     Active Substance: VINCRISTINE
     Route: 042
  15. PREDNISONE. [Suspect]
     Active Substance: PREDNISONE
     Indication: ACUTE LEUKAEMIA
     Route: 037

REACTIONS (1)
  - Febrile neutropenia [Unknown]
